FAERS Safety Report 7843058-X (Version None)
Quarter: 2011Q4

REPORT INFORMATION
  Report Type: 
  Country: None (occurrence: None)
  Receive Date: 20111025
  Receipt Date: 20111013
  Transmission Date: 20120403
  Serious: Yes (Hospitalization)
  Sender: FDA-Public Use
  Company Number: US-BAYER-2011-006886

PATIENT
  Age: 24 Year
  Sex: Female
  Weight: 90.703 kg

DRUGS (1)
  1. YASMIN [Suspect]
     Dosage: UNK
     Dates: start: 20071201, end: 20080801

REACTIONS (6)
  - EMOTIONAL DISTRESS [None]
  - ANXIETY [None]
  - GALLBLADDER DISORDER [None]
  - MENTAL DISORDER [None]
  - PAIN [None]
  - FEAR [None]
